FAERS Safety Report 23723102 (Version 1)
Quarter: 2024Q2

REPORT INFORMATION
  Report Type: Spontaneous
  Country: CN (occurrence: CN)
  Receive Date: 20240409
  Receipt Date: 20240409
  Transmission Date: 20240716
  Serious: Yes (Other)
  Sender: FDA-Public Use
  Company Number: None

PATIENT
  Age: 36 Year
  Sex: Female
  Weight: 61.5 kg

DRUGS (4)
  1. CYCLOPHOSPHAMIDE [Suspect]
     Active Substance: CYCLOPHOSPHAMIDE
     Indication: Breast cancer female
     Dosage: 950 MG, QD, 60 GTT/MIN, DILUTED WITH 500 ML OF 0.9% NS, SECOND COURSE OF CHEMOTHERAPY
     Route: 041
     Dates: start: 20240318, end: 20240319
  2. SODIUM CHLORIDE [Suspect]
     Active Substance: SODIUM CHLORIDE
     Indication: Medication dilution
     Dosage: 500 ML, QD, 60 GTT/MIN, USED TO DILUTE 950 MG OF CYCLOPHOSPHAMIDE, SECOND COURSE OF CHEMOTHERAPY, ST
     Route: 041
     Dates: start: 20240318, end: 20240319
  3. SODIUM CHLORIDE [Suspect]
     Active Substance: SODIUM CHLORIDE
     Dosage: 500 ML, QD, 60 GTT/MIN, USED TO DILUTE 120 MG OF DOCETAXEL, SECOND COURSE OF CHEMOTHERAPY, STRENGTH:
     Route: 041
     Dates: start: 20240318, end: 20240319
  4. DOCETAXEL [Suspect]
     Active Substance: DOCETAXEL\DOCETAXEL ANHYDROUS
     Indication: Breast cancer female
     Dosage: 120 MG, QD, 60 GTT/MIN, DILUTED WITH 500 ML OF 0.9% NS, SECOND COURSE OF CHEMOTHERAPY
     Route: 041
     Dates: start: 20240318, end: 20240319

REACTIONS (1)
  - White blood cell count decreased [Recovered/Resolved]

NARRATIVE: CASE EVENT DATE: 20240324
